FAERS Safety Report 24901350 (Version 2)
Quarter: 2025Q1

REPORT INFORMATION
  Report Type: Spontaneous
  Country: JP (occurrence: JP)
  Receive Date: 20250129
  Receipt Date: 20250227
  Transmission Date: 20250408
  Serious: No
  Sender: EISAI
  Company Number: JP-Eisai-202413923_LEN-EC_P_1

PATIENT
  Sex: Female

DRUGS (2)
  1. LENVIMA [Suspect]
     Active Substance: LENVATINIB
     Indication: Endometrial cancer
     Dates: start: 20240524, end: 20240614
  2. KEYTRUDA [Suspect]
     Active Substance: PEMBROLIZUMAB
     Indication: Endometrial cancer
     Dosage: 2 COURSES
     Dates: start: 20240524, end: 20240614

REACTIONS (3)
  - Pyrexia [Recovered/Resolved]
  - Hypothyroidism [Recovered/Resolved]
  - Hypoaesthesia [Unknown]

NARRATIVE: CASE EVENT DATE: 20240701
